FAERS Safety Report 14954512 (Version 1)
Quarter: 2018Q2

REPORT INFORMATION
  Report Type: Other
  Country: DK (occurrence: DK)
  Receive Date: 20180530
  Receipt Date: 20180530
  Transmission Date: 20180711
  Serious: Yes (Death)
  Sender: FDA-Public Use
  Company Number: DK-BIODELIVERY SCIENCES INTERNATIONAL-2016BDSI0081

PATIENT
  Age: 24 Year
  Sex: Female

DRUGS (9)
  1. TRAMADOL. [Suspect]
     Active Substance: TRAMADOL
  2. DIAMORPHINE [Suspect]
     Active Substance: DIAMORPHINE
  3. AMPHETAMINE [Suspect]
     Active Substance: AMPHETAMINE
  4. DIAZEPAM. [Suspect]
     Active Substance: DIAZEPAM
  5. NORDAZEPAM [Suspect]
     Active Substance: NORDAZEPAM
  6. MORPHINE [Suspect]
     Active Substance: MORPHINE
  7. FENTANYL UNSPECIFIED [Suspect]
     Active Substance: FENTANYL
     Indication: PRODUCT USED FOR UNKNOWN INDICATION
  8. CODEINE [Suspect]
     Active Substance: CODEINE
  9. METHADONE [Suspect]
     Active Substance: METHADONE HYDROCHLORIDE

REACTIONS (2)
  - Respiratory depression [Fatal]
  - Toxicity to various agents [Fatal]
